FAERS Safety Report 8175218-5 (Version None)
Quarter: 2012Q1

REPORT INFORMATION
  Report Type: 
  Country: None (occurrence: None)
  Receive Date: 20120229
  Receipt Date: 20110617
  Transmission Date: 20120608
  Serious: Yes (Other)
  Sender: FDA-Public Use
  Company Number: US-MYLANLABS-2011AC000035

PATIENT
  Age: 58 Year
  Sex: Female

DRUGS (19)
  1. VERAPAMIL [Concomitant]
  2. ATENOLOL [Concomitant]
  3. PREMARIN [Concomitant]
  4. SYNTHROID [Concomitant]
  5. OXYCODONE HCL [Concomitant]
  6. PREVACID [Concomitant]
  7. VIT. E [Concomitant]
  8. MUCINEX [Concomitant]
  9. HYDROCORTISONE VALERATE CREAM [Concomitant]
  10. SULFAMETHOXAZOLE AND TRIMETHOPRIM [Concomitant]
  11. DIGOXIN [Suspect]
     Indication: ATRIAL FIBRILLATION
     Route: 048
  12. MULTI-VITAMINS [Concomitant]
  13. DIOVAN HCT [Concomitant]
  14. ARTHROTEC [Concomitant]
  15. TRANXENE [Concomitant]
  16. CORTISONE ACETATE INJ [Concomitant]
  17. LOVAZA [Concomitant]
  18. LEVAQUIN [Concomitant]
  19. COUMDIN [Concomitant]

REACTIONS (7)
  - ECONOMIC PROBLEM [None]
  - VAGINAL HAEMORRHAGE [None]
  - CATHETER PLACEMENT [None]
  - ALOPECIA [None]
  - SINUS BRADYCARDIA [None]
  - WEIGHT DECREASED [None]
  - STEROID THERAPY [None]
